FAERS Safety Report 6031607-6 (Version None)
Quarter: 2009Q1

REPORT INFORMATION
  Report Type: 
  Country: None (occurrence: None)
  Receive Date: 20090108
  Receipt Date: 20081230
  Transmission Date: 20090719
  Serious: Yes (Hospitalization)
  Sender: FDA-Public Use
  Company Number: FR-ELI_LILLY_AND_COMPANY-FR200901000162

PATIENT
  Age: 48 Year
  Sex: Female

DRUGS (4)
  1. FORTEO [Suspect]
     Indication: OSTEOPOROSIS
     Dosage: 20 UG, DAILY (1/D)
     Route: 065
     Dates: start: 20080927, end: 20081215
  2. XATRAL /00975301/ [Concomitant]
     Dosage: UNK, UNKNOWN
     Route: 065
  3. GENTAMICIN [Concomitant]
     Dosage: UNK, UNKNOWN
     Route: 065
  4. OFLOXACIN [Concomitant]
     Dosage: UNK, UNKNOWN
     Route: 065

REACTIONS (3)
  - PYELONEPHRITIS [None]
  - RESIDUAL URINE [None]
  - URINARY TRACT INFECTION [None]
